FAERS Safety Report 4427274-5 (Version None)
Quarter: 2004Q3

REPORT INFORMATION
  Report Type: 
  Country: None (occurrence: None)
  Receive Date: 20040811
  Receipt Date: 20040727
  Transmission Date: 20050211
  Serious: Yes (Life-Threatening, Hospitalization)
  Sender: FDA-Public Use
  Company Number: 2004S1000041

PATIENT
  Age: 44 Year
  Sex: Male

DRUGS (11)
  1. OXANDRIN [Suspect]
     Indication: HIV WASTING SYNDROME
     Dosage: 10 MG QD PO
     Route: 048
     Dates: start: 20010101, end: 20030101
  2. AGENERASE [Suspect]
     Indication: HIV INFECTION
     Dates: end: 20030901
  3. FORTOVASE [Suspect]
     Indication: HIV INFECTION
     Dates: end: 20030901
  4. KALETRA [Suspect]
     Indication: HIV INFECTION
     Dates: end: 20030901
  5. NORVIR [Suspect]
     Indication: HIV INFECTION
     Dates: end: 20030901
  6. VIRACEPT [Suspect]
     Indication: HIV INFECTION
     Dates: end: 20030901
  7. MINOXIDIL [Concomitant]
  8. BETA BLOCKING AGENTS [Concomitant]
  9. ANTIHYPERTENSIVES [Concomitant]
  10. MARIJUANA [Concomitant]
  11. NUCLEOTIDE REVERSE TRANSCRIPTASE INHIBITORS [Concomitant]

REACTIONS (6)
  - BRAIN NATRIURETIC PEPTIDE INCREASED [None]
  - CORONARY ARTERY OCCLUSION [None]
  - CORONARY ARTERY STENOSIS [None]
  - DRUG RESISTANCE [None]
  - HYPERLIPIDAEMIA [None]
  - MYOCARDIAL INFARCTION [None]
